FAERS Safety Report 5943247-5 (Version None)
Quarter: 2008Q4

REPORT INFORMATION
  Report Type: 
  Country: None (occurrence: None)
  Receive Date: 20081106
  Receipt Date: 20081103
  Transmission Date: 20090506
  Serious: Yes (Hospitalization, Other)
  Sender: FDA-Public Use
  Company Number: TR-BRISTOL-MYERS SQUIBB COMPANY-14393235

PATIENT
  Age: 33 Year
  Sex: Female

DRUGS (3)
  1. HEPARIN SODIUM [Suspect]
     Indication: CEREBRAL INFARCTION
  2. WARFARIN SODIUM [Suspect]
  3. NIFEDIPINE [Suspect]

REACTIONS (6)
  - ANAEMIA [None]
  - INTRA-UTERINE DEATH [None]
  - PRE-ECLAMPSIA [None]
  - PREGNANCY [None]
  - RETROPERITONEAL HAEMATOMA [None]
  - SHOCK HAEMORRHAGIC [None]
